FAERS Safety Report 5256541-0 (Version None)
Quarter: 2007Q1

REPORT INFORMATION
  Report Type: 
  Country: None (occurrence: None)
  Receive Date: 20070306
  Receipt Date: 20070226
  Transmission Date: 20070707
  Serious: Yes (Hospitalization)
  Sender: FDA-Public Use
  Company Number: US-MERCK-0702USA04373

PATIENT
  Age: 81 Year
  Sex: Female

DRUGS (9)
  1. FOSAMAX PLUS D [Suspect]
     Indication: OSTEOPOROSIS
     Route: 048
     Dates: start: 19970101, end: 20070101
  2. FOSAMAX PLUS D [Suspect]
     Route: 048
     Dates: start: 20070101
  3. VASOTEC [Concomitant]
     Route: 065
  4. TENORMIN [Concomitant]
     Route: 065
  5. FLEXERIL [Concomitant]
     Route: 065
  6. CATAPRES [Concomitant]
     Route: 065
  7. COUMADIN [Concomitant]
     Route: 065
  8. PREVACID [Concomitant]
     Route: 065
  9. VITAMINS (UNSPECIFIED) [Concomitant]
     Route: 065

REACTIONS (5)
  - ADVERSE EVENT [None]
  - BACK PAIN [None]
  - CARDIAC DISORDER [None]
  - LIPOHYPERTROPHY [None]
  - OSTEOPOROSIS [None]
